FAERS Safety Report 9916900 (Version 2)
Quarter: 2014Q1

REPORT INFORMATION
  Report Type: Spontaneous
  Country: US (occurrence: US)
  Receive Date: 20140221
  Receipt Date: 20140221
  Transmission Date: 20141002
  Serious: No
  Sender: FDA-Public Use
  Company Number: US-MYLANLABS-2013S1005231

PATIENT
  Age: 74 Year
  Sex: Female
  Weight: 65.32 kg

DRUGS (4)
  1. GUANFACINE TABLETS, USP [Suspect]
     Indication: BLOOD PRESSURE INCREASED
     Route: 048
     Dates: start: 201301, end: 20130228
  2. GUANFACINE TABLETS, USP [Suspect]
     Indication: BLOOD PRESSURE INCREASED
     Route: 048
     Dates: start: 20130301
  3. RESERPINE [Suspect]
     Indication: LABILE HYPERTENSION
     Dates: start: 201207, end: 201301
  4. EPLERENONE [Concomitant]
     Indication: ADRENAL DISORDER
     Route: 048

REACTIONS (4)
  - Drug effect decreased [Recovered/Resolved]
  - Labile blood pressure [Recovered/Resolved]
  - Dysphonia [Not Recovered/Not Resolved]
  - Pharyngeal disorder [Not Recovered/Not Resolved]
